FAERS Safety Report 23470162 (Version 1)
Quarter: 2024Q1

REPORT INFORMATION
  Report Type: Spontaneous
  Country: CN (occurrence: CN)
  Receive Date: 20240202
  Receipt Date: 20240202
  Transmission Date: 20240410
  Serious: Yes (Other)
  Sender: FDA-Public Use
  Company Number: CN-AMGEN-CHNSP2024016596

PATIENT
  Age: 12 Year
  Sex: Male

DRUGS (2)
  1. XGEVA [Suspect]
     Active Substance: DENOSUMAB
     Indication: Aneurysmal bone cyst
     Dosage: 120 MILLIGRAM, Q2WK FOR THREE CONSECUTIVE TIMES
     Route: 058
     Dates: start: 202101
  2. XGEVA [Suspect]
     Active Substance: DENOSUMAB
     Dosage: 120 MILLIGRAM, QMO FOR 8 CONSECUTIVE TIMES
     Route: 058

REACTIONS (10)
  - Hyperparathyroidism secondary [Recovered/Resolved]
  - Therapeutic product effective for unapproved indication [Unknown]
  - Hypocalcaemia [Recovered/Resolved]
  - Chondrocalcinosis [Unknown]
  - Osteocalcin increased [Unknown]
  - Osteosclerosis [Unknown]
  - Off label use [Unknown]
  - Hypoaesthesia [Unknown]
  - Diarrhoea [Unknown]
  - Hypophosphataemia [Recovered/Resolved]
